FAERS Safety Report 15028858 (Version 1)
Quarter: 2018Q2

REPORT INFORMATION
  Report Type: Spontaneous
  Country: US (occurrence: US)
  Receive Date: 20180619
  Receipt Date: 20180619
  Transmission Date: 20180711
  Serious: No
  Sender: FDA-Public Use
  Company Number: US-SA-2018SA154842

PATIENT
  Age: 60 Year
  Sex: Male

DRUGS (4)
  1. TRIAMCINOLONE [Concomitant]
     Active Substance: TRIAMCINOLONE
  2. PREDNISONE. [Concomitant]
     Active Substance: PREDNISONE
  3. DUPILUMAB [Suspect]
     Active Substance: DUPILUMAB
     Indication: DERMATITIS ATOPIC
     Dosage: 600 MG, 1X
     Route: 058
     Dates: start: 20180504
  4. EUCRISA [Concomitant]
     Active Substance: CRISABOROLE

REACTIONS (1)
  - Visual impairment [Unknown]
